FAERS Safety Report 9540721 (Version 2)
Quarter: 2013Q4

REPORT INFORMATION
  Report Type: Spontaneous
  Country: CA (occurrence: CA)
  Receive Date: 20130920
  Receipt Date: 20131004
  Transmission Date: 20140711
  Serious: Yes (Hospitalization, Other)
  Sender: FDA-Public Use
  Company Number: CA-AMGEN-CANSP2013064887

PATIENT
  Age: 52 Year
  Sex: Female

DRUGS (1)
  1. PROLIA [Suspect]
     Indication: OSTEOPOROSIS POSTMENOPAUSAL
     Dosage: UNK
     Route: 065
     Dates: start: 20110503

REACTIONS (26)
  - Kidney infection [Unknown]
  - Cystitis [Unknown]
  - Pathogen resistance [Unknown]
  - Intervertebral disc protrusion [Unknown]
  - Nerve compression [Unknown]
  - Walking aid user [Unknown]
  - Muscle spasms [Unknown]
  - Arthralgia [Unknown]
  - Oedema peripheral [Unknown]
  - Fatigue [Unknown]
  - Blood calcium abnormal [Unknown]
  - Fibromyalgia [Unknown]
  - Burning sensation [Unknown]
  - Hypoaesthesia [Unknown]
  - Sleep disorder due to a general medical condition [Unknown]
  - Abdominal discomfort [Unknown]
  - Mood swings [Unknown]
  - Depressive symptom [Unknown]
  - Gait disturbance [Unknown]
  - Mobility decreased [Unknown]
  - Discomfort [Unknown]
  - Dizziness [Unknown]
  - Emotional distress [Unknown]
  - Confusional state [Unknown]
  - Temporomandibular joint syndrome [Unknown]
  - Rash [Unknown]
